FAERS Safety Report 6907945 (Version 6)
Quarter: 2012Q4

REPORT INFORMATION
  Report Type: 
  Country: US (occurrence: US)
  Receive Date: 20090212
  Receipt Date: 20120910
  Transmission Date: 20130627
  Serious: Yes (Other)
  Sender: FDA-Public Use
  Company Number: US-ASTRAZENECA-2009UW03515

PATIENT
  Age: 45 Year
  Sex: Female

DRUGS (3)
  1. NEXIUM [Suspect]
     Route: 048
     Dates: start: 20051108
  2. CRESTOR [Suspect]
     Route: 048
  3. SEROQUEL [Concomitant]
     Route: 048

REACTIONS (9)
  - Diabetes mellitus [Not Recovered/Not Resolved]
  - Back pain [Unknown]
  - Joint injury [Unknown]
  - Dry mouth [Not Recovered/Not Resolved]
  - Malaise [Unknown]
  - Malaise [Unknown]
  - Blood cholesterol increased [Unknown]
  - Drug ineffective [Unknown]
  - Drug dose omission [Unknown]
